FAERS Safety Report 23024235 (Version 1)
Quarter: 2023Q4

REPORT INFORMATION
  Report Type: Spontaneous
  Country: GB (occurrence: GB)
  Receive Date: 20231004
  Receipt Date: 20231004
  Transmission Date: 20240109
  Serious: Yes (Other)
  Sender: FDA-Public Use
  Company Number: GB-MHRA-TPP58358905C5451944YC1695134237114

PATIENT
  Age: 3 Year
  Sex: Male
  Weight: 18 kg

DRUGS (3)
  1. AMOXICILLIN\CLAVULANATE POTASSIUM [Suspect]
     Active Substance: AMOXICILLIN\CLAVULANATE POTASSIUM
     Indication: Product used for unknown indication
     Dosage: 250MG/125MG
     Route: 065
  2. LACTULOSE [Concomitant]
     Active Substance: LACTULOSE
     Indication: Product used for unknown indication
     Dosage: 5 MILLILITER, TWO TIMES A DAY(INCREASING TO 10ML IF NECESSARY)
     Route: 065
     Dates: start: 20221222
  3. SENNOSIDES [Concomitant]
     Active Substance: SENNOSIDES
     Indication: Product used for unknown indication
     Dosage: 5 MILLILITER, AS NECESSARY(NOCTE, INCREASING TO 10ML NOCT)
     Route: 065
     Dates: start: 20221222

REACTIONS (1)
  - Eczema [Recovering/Resolving]
